FAERS Safety Report 12231635 (Version 1)
Quarter: 2016Q2

REPORT INFORMATION
  Report Type: Spontaneous
  Country: US (occurrence: US)
  Receive Date: 20160401
  Receipt Date: 20160401
  Transmission Date: 20160815
  Serious: No
  Sender: FDA-Public Use
  Company Number: US-BAYER-2016-052501

PATIENT
  Age: 78 Year
  Sex: Female
  Weight: 49.89 kg

DRUGS (1)
  1. LOTRIMIN ULTRA ANTIFUNGAL [Suspect]
     Active Substance: BUTENAFINE HYDROCHLORIDE
     Indication: ORAL MUCOSAL ERYTHEMA
     Dosage: UNK
     Route: 061
     Dates: start: 20160315

REACTIONS (4)
  - Tongue discolouration [None]
  - Product use issue [None]
  - Product use issue [None]
  - Dyspnoea [None]

NARRATIVE: CASE EVENT DATE: 20160315
